FAERS Safety Report 17489690 (Version 1)
Quarter: 2020Q1

REPORT INFORMATION
  Report Type: Spontaneous
  Country: SE (occurrence: SE)
  Receive Date: 20200303
  Receipt Date: 20200303
  Transmission Date: 20200409
  Serious: Yes (Other)
  Sender: FDA-Public Use
  Company Number: SE-MYLANLABS-2020M1022887

PATIENT
  Sex: Male

DRUGS (3)
  1. RANITIDIN SANDOZ [Suspect]
     Active Substance: RANITIDINE HYDROCHLORIDE
     Dosage: 150 MG, BID (150 MG RANITIDIN IN THE EVENING
     Route: 065
  2. RANITIDIN SANDOZ [Suspect]
     Active Substance: RANITIDINE HYDROCHLORIDE
     Indication: GASTROOESOPHAGEAL REFLUX DISEASE
     Dosage: 450 MG, QD (IN THE EVENING TO 300 MG
     Route: 065
  3. RANITIDINE. [Suspect]
     Active Substance: RANITIDINE
     Indication: GASTROOESOPHAGEAL REFLUX DISEASE
     Dosage: UNK
     Route: 065

REACTIONS (4)
  - Asphyxia [Unknown]
  - Near death experience [Unknown]
  - Loss of consciousness [Unknown]
  - Drug ineffective [Unknown]
